FAERS Safety Report 16114892 (Version 2)
Quarter: 2019Q4

REPORT INFORMATION
  Report Type: Spontaneous
  Country: FR (occurrence: FR)
  Receive Date: 20190325
  Receipt Date: 20191223
  Transmission Date: 20200122
  Serious: Yes (Other)
  Sender: FDA-Public Use
  Company Number: FR-PFIZER INC-2019123617

PATIENT
  Age: 2 Year
  Sex: Male
  Weight: 11 kg

DRUGS (4)
  1. IFOSFAMIDE EG [Suspect]
     Active Substance: IFOSFAMIDE
     Indication: EMBRYONAL RHABDOMYOSARCOMA
     Dosage: 1560 MG, CYCLIC (ONCE DAILY, CYCLE 1 ON DAY 1-DAY 2)
     Route: 041
     Dates: start: 20171030, end: 20171031
  2. VINCRISTINE HOSPIRA [Suspect]
     Active Substance: VINCRISTINE
     Indication: EMBRYONAL RHABDOMYOSARCOMA
     Dosage: 2.31 MG, CYCLIC (0.78 MG AT DAY 1- DAY 8 AND 0.75 AT DAY 15)
     Route: 041
     Dates: start: 20171030, end: 20171115
  3. COSMEGEN [Suspect]
     Active Substance: DACTINOMYCIN
     Indication: EMBRYONAL RHABDOMYOSARCOMA
     Dosage: 0.8 G, 5 INTAKES
     Route: 041
     Dates: start: 20171030, end: 20171030
  4. DOXORUBICINE ACCORD [Suspect]
     Active Substance: DOXORUBICIN
     Indication: EMBRYONAL RHABDOMYOSARCOMA
     Dosage: 15.6 MG, CYCLIC (ONCE DAILY, CYCLE 1 ON DAY 1-DAY 2)
     Route: 041
     Dates: start: 20171030, end: 20171031

REACTIONS (3)
  - Febrile bone marrow aplasia [Recovered/Resolved]
  - Off label use [Unknown]
  - Product use in unapproved indication [Unknown]

NARRATIVE: CASE EVENT DATE: 20171105
